FAERS Safety Report 7605354-0 (Version None)
Quarter: 2011Q3

REPORT INFORMATION
  Report Type: 
  Country: None (occurrence: None)
  Receive Date: 20110712
  Receipt Date: 20110712
  Transmission Date: 20111222
  Serious: Yes (Hospitalization)
  Sender: FDA-Public Use
  Company Number: None

PATIENT
  Age: 60 Year
  Sex: Male
  Weight: 84.1 kg

DRUGS (3)
  1. CELECOXIB [Suspect]
     Indication: ARTHRITIS
     Dosage: 200 MG EVERY DAY PO
     Route: 048
     Dates: start: 20110331, end: 20110420
  2. CELECOXIB [Suspect]
     Indication: GOUT
     Dosage: 200 MG EVERY DAY PO
     Route: 048
     Dates: start: 20110331, end: 20110420
  3. SPIRONOLACTONE [Suspect]
     Indication: HYPERTENSION
     Dosage: 25 MG EVERY DAY PO
     Route: 048
     Dates: start: 20110331, end: 20110420

REACTIONS (3)
  - DYSURIA [None]
  - RENAL FAILURE ACUTE [None]
  - NEURALGIA [None]
